FAERS Safety Report 15861603 (Version 1)
Quarter: 2019Q1

REPORT INFORMATION
  Report Type: Spontaneous
  Country: GB (occurrence: GB)
  Receive Date: 20190124
  Receipt Date: 20190124
  Transmission Date: 20190417
  Serious: Yes (Other)
  Sender: FDA-Public Use
  Company Number: GB-ACCORD-103182

PATIENT
  Age: 70 Year
  Sex: Female

DRUGS (9)
  1. ZOPICLONE [Concomitant]
     Active Substance: ZOPICLONE
  2. PARACETAMOL [Concomitant]
     Active Substance: ACETAMINOPHEN
  3. TIOTROPIUM/TIOTROPIUM BROMIDE [Concomitant]
  4. SALBUTAMOL [Concomitant]
     Active Substance: ALBUTEROL
  5. SENNA ALEXANDRINA [Concomitant]
     Active Substance: SENNA LEAF
  6. SERETIDE [Concomitant]
     Active Substance: FLUTICASONE PROPIONATE\SALMETEROL XINAFOATE
  7. CLOZAPINE. [Suspect]
     Active Substance: CLOZAPINE
     Indication: SCHIZOAFFECTIVE DISORDER
     Dosage: 75MG IN THE MORNING + 125MG IN THE NIGHT.
     Route: 048
  8. FUROSEMIDE. [Concomitant]
     Active Substance: FUROSEMIDE
  9. PROCYCLIDINE [Concomitant]
     Active Substance: PROCYCLIDINE

REACTIONS (4)
  - Salivary hypersecretion [Not Recovered/Not Resolved]
  - Lethargy [Recovering/Resolving]
  - Cardiac failure congestive [Unknown]
  - Dysarthria [Recovering/Resolving]

NARRATIVE: CASE EVENT DATE: 20180321
